FAERS Safety Report 7880549-X (Version None)
Quarter: 2011Q4

REPORT INFORMATION
  Report Type: 
  Country: None (occurrence: None)
  Receive Date: 20111101
  Receipt Date: 20111017
  Transmission Date: 20120403
  Serious: Yes (Hospitalization)
  Sender: FDA-Public Use
  Company Number: IE-WATSON-2011-17139

PATIENT
  Age: 56 Year
  Sex: Male

DRUGS (7)
  1. IBUPROFEN [Suspect]
     Indication: PYREXIA
  2. BCG                                /00002001/ [Suspect]
     Indication: BLADDER CANCER
  3. ACETAMINOPHEN [Suspect]
     Indication: MYALGIA
  4. DICLOFENAC SODIUM [Suspect]
     Indication: PYREXIA
     Route: 065
  5. ACETAMINOPHEN [Suspect]
     Indication: PYREXIA
     Route: 065
  6. DICLOFENAC SODIUM [Suspect]
     Indication: MYALGIA
  7. IBUPROFEN [Suspect]
     Indication: MYALGIA
     Route: 065

REACTIONS (2)
  - HEPATORENAL FAILURE [None]
  - MULTI-ORGAN FAILURE [None]
